FAERS Safety Report 25564663 (Version 1)
Quarter: 2025Q3

REPORT INFORMATION
  Report Type: Spontaneous
  Country: US (occurrence: US)
  Receive Date: 20250716
  Receipt Date: 20250716
  Transmission Date: 20251021
  Serious: No
  Sender: NOVO NORDISK
  Company Number: US-NOVOPROD-1293800

PATIENT
  Sex: Male

DRUGS (1)
  1. OZEMPIC [Suspect]
     Active Substance: SEMAGLUTIDE
     Indication: Glucose tolerance impaired
     Route: 058
     Dates: start: 20240807

REACTIONS (5)
  - Energy increased [Unknown]
  - Asthenia [Unknown]
  - Product communication issue [Unknown]
  - Product use issue [Unknown]
  - Off label use [Not Recovered/Not Resolved]
